FAERS Safety Report 10272082 (Version 1)
Quarter: 2014Q3

REPORT INFORMATION
  Report Type: Spontaneous
  Country: US (occurrence: US)
  Receive Date: 20140702
  Receipt Date: 20140702
  Transmission Date: 20150326
  Serious: No
  Sender: FDA-Public Use
  Company Number: US-009507513-1406USA014105

PATIENT

DRUGS (1)
  1. PROVENTIL [Suspect]
     Active Substance: ALBUTEROL
     Dosage: PROVENTIL INHALATION AEROSOL HFA 90 MCG,1 OR 2 PUFFS EVERY 4 -6 HRS/AS NEEDED,STARTED FEW YEARS AGO
     Route: 055

REACTIONS (3)
  - Underdose [Unknown]
  - No adverse event [Unknown]
  - Product quality issue [Unknown]
